FAERS Safety Report 23716999 (Version 1)
Quarter: 2024Q2

REPORT INFORMATION
  Report Type: Other
  Country: CN (occurrence: CN)
  Receive Date: 20240408
  Receipt Date: 20240408
  Transmission Date: 20240716
  Serious: Yes (Other)
  Sender: FDA-Public Use
  Company Number: CN-ASTELLAS-2024US010064

PATIENT
  Age: 86 Year
  Sex: Male

DRUGS (2)
  1. MYCAMINE [Suspect]
     Active Substance: MICAFUNGIN SODIUM
     Indication: Infection
     Route: 065
     Dates: start: 20230910
  2. MYCAMINE [Suspect]
     Active Substance: MICAFUNGIN SODIUM
     Route: 041
     Dates: start: 20240111, end: 20240115

REACTIONS (3)
  - Drug-induced liver injury [Unknown]
  - Liver function test increased [Unknown]
  - Transaminases increased [Unknown]

NARRATIVE: CASE EVENT DATE: 20230910
